FAERS Safety Report 6809813-X (Version None)
Quarter: 2010Q2

REPORT INFORMATION
  Report Type: 
  Country: None (occurrence: None)
  Receive Date: 20100630
  Receipt Date: 20100622
  Transmission Date: 20101027
  Serious: Yes (Hospitalization)
  Sender: FDA-Public Use
  Company Number: US-JNJFOC-20100606789

PATIENT
  Sex: Female
  Weight: 47.17 kg

DRUGS (4)
  1. LEVAQUIN [Suspect]
     Indication: DRUG USE FOR UNKNOWN INDICATION
     Route: 048
  2. METOPROLOL [Concomitant]
     Indication: ANTICOAGULANT THERAPY
     Route: 065
  3. PRAVASTATIN [Concomitant]
     Indication: BLOOD CHOLESTEROL
     Route: 065
  4. ASPIRIN [Concomitant]
     Route: 065

REACTIONS (3)
  - BLINDNESS UNILATERAL [None]
  - DIZZINESS [None]
  - DYSPNOEA [None]
